FAERS Safety Report 9406347 (Version 2)
Quarter: 2013Q4

REPORT INFORMATION
  Report Type: Spontaneous
  Country: CN (occurrence: CN)
  Receive Date: 20130717
  Receipt Date: 20131113
  Transmission Date: 20140711
  Serious: Yes (Other)
  Sender: FDA-Public Use
  Company Number: CN-JNJFOC-20130703121

PATIENT
  Age: 6 Month
  Sex: Male
  Weight: 8 kg

DRUGS (3)
  1. MOTRIN SUSPENSION [Suspect]
     Route: 048
  2. MOTRIN SUSPENSION [Suspect]
     Indication: PYREXIA
     Route: 048
     Dates: start: 20130704
  3. UNSPECIFIED VACCINES [Concomitant]
     Indication: PRODUCT USED FOR UNKNOWN INDICATION
     Route: 050

REACTIONS (4)
  - Medication error [Recovered/Resolved]
  - Incorrect dose administered [Recovered/Resolved]
  - Hyperhidrosis [Recovered/Resolved]
  - Crying [Recovered/Resolved]
